FAERS Safety Report 9972689 (Version 2)
Quarter: 2014Q1

REPORT INFORMATION
  Report Type: Report from Study
  Country: CO (occurrence: CO)
  Receive Date: 20140306
  Receipt Date: 20140306
  Transmission Date: 20141002
  Serious: Yes (Death)
  Sender: FDA-Public Use
  Company Number: CO-BRISTOL-MYERS SQUIBB COMPANY-19706746

PATIENT
  Age: 44 Year
  Sex: Female

DRUGS (1)
  1. DASATINIB [Suspect]
     Indication: CHRONIC MYELOID LEUKAEMIA
     Dosage: TABLET
     Route: 048
     Dates: start: 20130830

REACTIONS (6)
  - Death [Fatal]
  - Tachycardia [Unknown]
  - Asthenia [Unknown]
  - Anal haemorrhage [Unknown]
  - Vomiting [Unknown]
  - Diarrhoea [Unknown]
